FAERS Safety Report 4346826-4 (Version None)
Quarter: 2004Q2

REPORT INFORMATION
  Report Type: 
  Country: None (occurrence: None)
  Receive Date: 20040426
  Receipt Date: 20031016
  Transmission Date: 20050107
  Serious: Yes (Disabling, Other)
  Sender: FDA-Public Use
  Company Number: US-MERCK-0310USA01948

PATIENT
  Age: 43 Year
  Sex: Male
  Weight: 118 kg

DRUGS (30)
  1. DARVOCET-N 100 [Concomitant]
     Route: 065
  2. NORVASC [Concomitant]
     Indication: HYPERTENSION
     Route: 065
     Dates: start: 20000530, end: 20010628
  3. LOTREL [Concomitant]
     Route: 065
  4. ASPIRIN [Concomitant]
     Route: 065
  5. LIPITOR [Concomitant]
     Indication: BLOOD TRIGLYCERIDES INCREASED
     Route: 065
     Dates: start: 20000629, end: 20021007
  6. LIPITOR [Concomitant]
     Route: 065
     Dates: end: 20030601
  7. LIPITOR [Concomitant]
     Indication: BLOOD CHOLESTEROL INCREASED
     Route: 065
     Dates: start: 20000629, end: 20021007
  8. LIPITOR [Concomitant]
     Route: 065
     Dates: end: 20030601
  9. PLAVIX [Concomitant]
     Route: 065
  10. CLORAZEPATE DIPOTASSIUM [Concomitant]
     Route: 065
  11. NEXIUM [Concomitant]
     Indication: GASTROOESOPHAGEAL REFLUX DISEASE
     Route: 065
  12. ZETIA [Concomitant]
     Indication: BLOOD TRIGLYCERIDES INCREASED
     Route: 048
     Dates: start: 20000101
  13. ZETIA [Concomitant]
     Route: 048
     Dates: start: 20030403
  14. TRICOR [Concomitant]
     Indication: BLOOD TRIGLYCERIDES INCREASED
     Route: 065
     Dates: start: 20000101
  15. ALLEGRA [Concomitant]
     Route: 065
  16. NEURONTIN [Concomitant]
     Route: 065
  17. GLUCOVANCE [Concomitant]
     Route: 065
  18. HYDRODIURIL [Concomitant]
     Route: 048
  19. IBUPROFEN [Concomitant]
     Route: 065
  20. ROBAXIN [Concomitant]
     Route: 048
  21. TOPROL-XL [Concomitant]
     Indication: HYPERTENSION
     Route: 048
     Dates: start: 20000101, end: 20030601
  22. TOPROL-XL [Concomitant]
     Route: 048
  23. PRILOSEC [Concomitant]
     Indication: GASTROOESOPHAGEAL REFLUX DISEASE
     Route: 065
  24. PAXIL [Concomitant]
     Indication: DEPRESSION
     Route: 065
     Dates: start: 20000101
  25. VIOXX [Suspect]
     Indication: PAIN IN EXTREMITY
     Route: 048
     Dates: start: 20000701
  26. VIOXX [Suspect]
     Route: 048
     Dates: start: 20010201, end: 20020301
  27. VIOXX [Suspect]
     Route: 048
     Dates: start: 20020321
  28. ZOCOR [Concomitant]
     Indication: BLOOD CHOLESTEROL INCREASED
     Route: 048
     Dates: start: 20000101, end: 20010312
  29. ZOCOR [Concomitant]
     Route: 048
  30. ZOCOR [Concomitant]
     Route: 065

REACTIONS (29)
  - ABDOMINAL DISTENSION [None]
  - ABDOMINAL PAIN [None]
  - AMNESIA [None]
  - ANXIETY [None]
  - ASTHENIA [None]
  - ATHEROSCLEROSIS [None]
  - BACK PAIN [None]
  - BLOOD PRESSURE INCREASED [None]
  - CEREBRAL INFARCTION [None]
  - CEREBROVASCULAR ACCIDENT [None]
  - CHEST PAIN [None]
  - CONVULSION [None]
  - DEPRESSION [None]
  - DIABETES MELLITUS NON-INSULIN-DEPENDENT [None]
  - DYSPHAGIA [None]
  - DYSPNOEA [None]
  - ERUCTATION [None]
  - FATIGUE [None]
  - HYPERCHOLESTEROLAEMIA [None]
  - HYPERTRIGLYCERIDAEMIA [None]
  - LACUNAR INFARCTION [None]
  - MUSCLE SPASMS [None]
  - MUSCLE TWITCHING [None]
  - MYALGIA [None]
  - PAIN IN EXTREMITY [None]
  - SLEEP APNOEA SYNDROME [None]
  - TREMOR [None]
  - UPPER RESPIRATORY TRACT INFECTION [None]
  - WHEEZING [None]
